FAERS Safety Report 8459931-8 (Version None)
Quarter: 2012Q2

REPORT INFORMATION
  Report Type: 
  Country: None (occurrence: None)
  Receive Date: 20120622
  Receipt Date: 20120619
  Transmission Date: 20120825
  Serious: Yes (Hospitalization)
  Sender: FDA-Public Use
  Company Number: PHHY2011PT77513

PATIENT
  Age: 41 Year
  Sex: Female

DRUGS (1)
  1. GILENYA [Suspect]
     Indication: MULTIPLE SCLEROSIS
     Dosage: UNK UKN, UNK
     Route: 048
     Dates: start: 20110727

REACTIONS (6)
  - DIZZINESS [None]
  - MULTIPLE SCLEROSIS RELAPSE [None]
  - SENSORY LOSS [None]
  - URINARY TRACT INFECTION [None]
  - PYREXIA [None]
  - BALANCE DISORDER [None]
